FAERS Safety Report 25945590 (Version 1)
Quarter: 2025Q4

REPORT INFORMATION
  Report Type: Spontaneous
  Country: US (occurrence: US)
  Receive Date: 20251021
  Receipt Date: 20251021
  Transmission Date: 20260117
  Serious: Yes (Other)
  Sender: BRISTOL-MYERS SQUIBB COMPANY
  Company Number: US-BRISTOL-MYERS SQUIBB COMPANY-2025-142898

PATIENT
  Age: 76 Year
  Sex: Male

DRUGS (4)
  1. IDHIFA [Suspect]
     Active Substance: ENASIDENIB MESYLATE
     Indication: Acute myeloid leukaemia
     Dosage: TWICE A  DAY
     Dates: start: 20250420
  2. IDHIFA [Suspect]
     Active Substance: ENASIDENIB MESYLATE
     Indication: Graft versus host disease
     Dosage: DAILY
  3. IDHIFA [Suspect]
     Active Substance: ENASIDENIB MESYLATE
     Dosage: DAILY
  4. JAKAFI [Concomitant]
     Active Substance: RUXOLITINIB
     Indication: Acute myeloid leukaemia
     Dosage: TWICE DAILY
     Dates: start: 20251001

REACTIONS (2)
  - Diarrhoea [Unknown]
  - Neutropenia [Unknown]
